FAERS Safety Report 12965669 (Version 2)
Quarter: 2016Q4

REPORT INFORMATION
  Report Type: Spontaneous
  Country: FR (occurrence: FR)
  Receive Date: 20161122
  Receipt Date: 20161207
  Transmission Date: 20170207
  Serious: Yes (Hospitalization, Other)
  Sender: FDA-Public Use
  Company Number: FR-PFIZER INC-2016532182

PATIENT
  Age: 76 Year
  Sex: Male

DRUGS (8)
  1. AVLOCARDYL /00030001/ [Concomitant]
     Active Substance: PROPRANOLOL HYDROCHLORIDE
     Dosage: 1 DF, 1X/DAY
     Route: 048
  2. RAMIPRIL. [Concomitant]
     Active Substance: RAMIPRIL
     Dosage: 1.25 MG, 1X/DAY
     Route: 048
  3. FUROSEMIDE. [Concomitant]
     Active Substance: FUROSEMIDE
     Dosage: 40 MG, 1X/DAY
     Route: 048
  4. CORDARONE [Concomitant]
     Active Substance: AMIODARONE HYDROCHLORIDE
     Dosage: 1 DF, 1X/DAY 200 MG
     Route: 048
  5. DUPHALAC FRUKT [Concomitant]
     Dosage: 1 DF, 1X/DAY
  6. SOLU-MEDROL [Suspect]
     Active Substance: METHYLPREDNISOLONE SODIUM SUCCINATE
     Indication: BRONCHITIS
     Dosage: UNK
     Route: 042
     Dates: start: 20161002, end: 20161005
  7. CEFTRIAXONE SODIUM. [Interacting]
     Active Substance: CEFTRIAXONE SODIUM
     Indication: BRONCHITIS
     Dosage: 1 DF, 1X/DAY
     Route: 042
     Dates: start: 20161002, end: 20161005
  8. PREVISCAN /00789001/ [Interacting]
     Active Substance: FLUINDIONE
     Indication: ATRIAL FIBRILLATION
     Dosage: 20 MG TABLET (1/2 TABLET ON EVEN DAYS, 3/4 TABLET ON ODD DAYS), ALTERNATE DAY
     Route: 048
     Dates: end: 20161005

REACTIONS (4)
  - Adenocarcinoma of colon [Unknown]
  - Drug interaction [Unknown]
  - International normalised ratio increased [Recovered/Resolved]
  - Rectal haemorrhage [Recovered/Resolved]

NARRATIVE: CASE EVENT DATE: 20161004
